FAERS Safety Report 10245410 (Version 2)
Quarter: 2014Q2

REPORT INFORMATION
  Report Type: Spontaneous
  Country: CH (occurrence: CH)
  Receive Date: 20140618
  Receipt Date: 20140626
  Transmission Date: 20141212
  Serious: Yes (Other)
  Sender: FDA-Public Use
  Company Number: PHHY2014CH075134

PATIENT
  Sex: 0
  Weight: 64 kg

DRUGS (1)
  1. GILENYA [Suspect]
     Indication: RELAPSING-REMITTING MULTIPLE SCLEROSIS
     Dosage: 1 CAPSULE, QD
     Route: 048
     Dates: start: 201104

REACTIONS (9)
  - Duodenitis [Unknown]
  - Gastritis [Unknown]
  - Abdominal pain lower [Unknown]
  - Gastrointestinal sounds abnormal [Unknown]
  - Bowel movement irregularity [Unknown]
  - Diarrhoea [Unknown]
  - Crohn^s disease [Not Recovered/Not Resolved]
  - Concomitant disease aggravated [Not Recovered/Not Resolved]
  - C-reactive protein increased [Unknown]
